FAERS Safety Report 17787671 (Version 3)
Quarter: 2021Q1

REPORT INFORMATION
  Report Type: Spontaneous
  Country: US (occurrence: US)
  Receive Date: 20200514
  Receipt Date: 20210129
  Transmission Date: 20210419
  Serious: Yes (Other)
  Sender: FDA-Public Use
  Company Number: US-NAPPMUNDI-USA-2020-0153039

PATIENT
  Sex: Male

DRUGS (6)
  1. OXYCODONE/ ACETAMINOPHEN TABLETS [Suspect]
     Active Substance: ACETAMINOPHEN\OXYCODONE HYDROCHLORIDE
     Indication: PRODUCT USED FOR UNKNOWN INDICATION
     Dosage: 10?325 MG
     Route: 048
  2. OXYCONTIN [Suspect]
     Active Substance: OXYCODONE HYDROCHLORIDE
     Dosage: 4 X 60 MG, QID
     Route: 048
  3. OXYCODONE HCL CR TABLETS (SIMILAR TO NDA 22?272) [Suspect]
     Active Substance: OXYCODONE HYDROCHLORIDE
     Indication: PRODUCT USED FOR UNKNOWN INDICATION
     Dosage: 20 MG
     Route: 048
  4. OXYCONTIN [Suspect]
     Active Substance: OXYCODONE HYDROCHLORIDE
     Dosage: 3 X 20 MG, TID
     Route: 048
     Dates: start: 2019
  5. OXYCONTIN [Suspect]
     Active Substance: OXYCODONE HYDROCHLORIDE
     Indication: MIGRAINE
     Dosage: 4 X 80 MG, QID
     Route: 048
  6. HYDROCODONE BITARTRATE AND ACETAMINOPHEN [Suspect]
     Active Substance: ACETAMINOPHEN\HYDROCODONE BITARTRATE
     Indication: PRODUCT USED FOR UNKNOWN INDICATION
     Dosage: UNKNOWN
     Route: 048

REACTIONS (19)
  - Disability [Unknown]
  - Anxiety [Unknown]
  - Off label use [Not Recovered/Not Resolved]
  - Drug dependence [Unknown]
  - Personality change [Unknown]
  - Injury [Unknown]
  - Hypertension [Unknown]
  - Decreased appetite [Unknown]
  - Loss of consciousness [Unknown]
  - Confusional state [Unknown]
  - Memory impairment [Unknown]
  - Drug withdrawal syndrome [Unknown]
  - Mental disorder [Unknown]
  - Hallucination, auditory [Unknown]
  - Nervous system disorder [Unknown]
  - Epistaxis [Unknown]
  - Spinal operation [Unknown]
  - Myocardial infarction [Unknown]
  - Anal incontinence [Unknown]

NARRATIVE: CASE EVENT DATE: 2019
